FAERS Safety Report 11760865 (Version 2)
Quarter: 2018Q4

REPORT INFORMATION
  Report Type: Spontaneous
  Country: FR (occurrence: FR)
  Receive Date: 20151120
  Receipt Date: 20181105
  Transmission Date: 20190204
  Serious: Yes (Hospitalization)
  Sender: FDA-Public Use
  Company Number: FR-PFIZER INC-2015393324

PATIENT
  Age: 87 Year
  Sex: Male

DRUGS (4)
  1. ESOMEPRAZOLE MAGNESIUM. [Suspect]
     Active Substance: ESOMEPRAZOLE MAGNESIUM
  2. SPIRONOLACTONE. [Suspect]
     Active Substance: SPIRONOLACTONE
  3. CLOPIDOGREL [Suspect]
     Active Substance: CLOPIDOGREL BISULFATE
  4. AMIODARONE [Concomitant]
     Active Substance: AMIODARONE

REACTIONS (4)
  - Inappropriate antidiuretic hormone secretion [Unknown]
  - Haematuria [Recovered/Resolved]
  - Blood creatinine increased [Recovered/Resolved]
  - Hyponatraemia [Recovered/Resolved]
